FAERS Safety Report 24223243 (Version 1)
Quarter: 2024Q3

REPORT INFORMATION
  Report Type: Report from Study
  Country: CA (occurrence: None)
  Receive Date: 20240819
  Receipt Date: 20240819
  Transmission Date: 20241017
  Serious: Yes (Hospitalization, Other)
  Sender: ASTRAZENECA
  Company Number: 2023A124521

PATIENT
  Age: 26796 Day
  Sex: Male

DRUGS (8)
  1. FASENRA [Suspect]
     Active Substance: BENRALIZUMAB
     Indication: Asthma
     Dosage: 30.0MG UNKNOWN
     Route: 058
     Dates: start: 20190424
  2. FASENRA [Suspect]
     Active Substance: BENRALIZUMAB
     Indication: Asthma
     Route: 058
     Dates: start: 20190424
  3. ATORVASTATIN [Concomitant]
     Active Substance: ATORVASTATIN
  4. FLUCONAZOLE [Concomitant]
     Active Substance: FLUCONAZOLE
  5. SPIRIVA [Concomitant]
     Active Substance: TIOTROPIUM BROMIDE MONOHYDRATE
  6. SYMBICORT [Concomitant]
     Active Substance: BUDESONIDE\FORMOTEROL FUMARATE DIHYDRATE
  7. RANITIDINE [Concomitant]
     Active Substance: RANITIDINE
  8. PANTOPRAZOLE MAGNESIUM [Concomitant]
     Active Substance: PANTOPRAZOLE MAGNESIUM

REACTIONS (2)
  - Cerebrovascular accident [Unknown]
  - Central nervous system vasculitis [Unknown]

NARRATIVE: CASE EVENT DATE: 20230504
